FAERS Safety Report 8251111-4 (Version None)
Quarter: 2012Q1

REPORT INFORMATION
  Report Type: 
  Country: None (occurrence: None)
  Receive Date: 20120328
  Receipt Date: 20120312
  Transmission Date: 20120608
  Serious: Yes (Hospitalization)
  Sender: FDA-Public Use
  Company Number: 2012-000659

PATIENT
  Age: 70 Year
  Sex: Female
  Weight: 48 kg

DRUGS (2)
  1. IDEOS (CALCIUM CARBONATE, COLECALCIFEROL) [Concomitant]
  2. ACTONEL [Suspect]
     Dosage: 35 MG, 1/WEEK, ORAL
     Route: 048
     Dates: start: 20100101, end: 20120201

REACTIONS (8)
  - DYSPHAGIA [None]
  - LARYNGITIS [None]
  - FATIGUE [None]
  - CHILLS [None]
  - LUNG NEOPLASM [None]
  - COUGH [None]
  - RESPIRATORY TRACT INFECTION [None]
  - PYREXIA [None]
